FAERS Safety Report 18269638 (Version 6)
Quarter: 2020Q3

REPORT INFORMATION
  Report Type: Spontaneous
  Country: TW (occurrence: TW)
  Receive Date: 20200915
  Receipt Date: 20200924
  Transmission Date: 20201103
  Serious: Yes (Death)
  Sender: FDA-Public Use
  Company Number: TW-ABBVIE-20K-153-3557246-00

PATIENT
  Age: 94 Year
  Sex: Female

DRUGS (1)
  1. MAVIRET [Suspect]
     Active Substance: GLECAPREVIR\PIBRENTASVIR
     Indication: HEPATITIS C
     Route: 048
     Dates: start: 20200813, end: 20200904

REACTIONS (7)
  - Haemoptysis [Unknown]
  - Ocular icterus [Unknown]
  - Aspartate aminotransferase increased [Unknown]
  - Death [Fatal]
  - Cough [Unknown]
  - Alanine aminotransferase increased [Unknown]
  - Blood bilirubin increased [Unknown]

NARRATIVE: CASE EVENT DATE: 20200904
